FAERS Safety Report 15617560 (Version 3)
Quarter: 2018Q4

REPORT INFORMATION
  Report Type: Report from Study
  Country: FR (occurrence: FR)
  Receive Date: 20181114
  Receipt Date: 20181126
  Transmission Date: 20190205
  Serious: Yes (Hospitalization, Other)
  Sender: FDA-Public Use
  Company Number: FR-BAYER-2018-205639

PATIENT
  Sex: Male
  Weight: 18 kg

DRUGS (11)
  1. IRINOTECAN [Suspect]
     Active Substance: IRINOTECAN
     Indication: RHABDOMYOSARCOMA RECURRENT
     Dosage: 180 MG, UNK
     Route: 042
     Dates: start: 20181022, end: 20181026
  2. VINCRISTINE [Suspect]
     Active Substance: VINCRISTINE
     Indication: RHABDOMYOSARCOMA RECURRENT
     Dosage: 1.1 MG, UNK
     Route: 042
     Dates: start: 20181022, end: 20181022
  3. SOLU-MEDROL [Concomitant]
     Active Substance: METHYLPREDNISOLONE SODIUM SUCCINATE
     Indication: PROPHYLAXIS OF NAUSEA AND VOMITING
     Dosage: 15 MG, QD
     Route: 042
     Dates: start: 20181022, end: 20181025
  4. ZOPHREN [Concomitant]
     Active Substance: ONDANSETRON
     Indication: VOMITING
     Dosage: 5 ML, QD
     Route: 048
     Dates: start: 20181027, end: 20181028
  5. REGORAFENIB. [Suspect]
     Active Substance: REGORAFENIB
     Indication: RHABDOMYOSARCOMA RECURRENT
     Dosage: 420 MG, UNK
     Route: 048
     Dates: start: 20181029
  6. ZOPHREN [Concomitant]
     Active Substance: ONDANSETRON
     Indication: NAUSEA
     Dosage: 3 MG, QD
     Route: 042
     Dates: start: 20181026, end: 20181026
  7. VINCRISTINE [Suspect]
     Active Substance: VINCRISTINE
     Indication: RHABDOMYOSARCOMA RECURRENT
     Dosage: 1.1 MG, UNK
     Route: 042
     Dates: start: 20181029, end: 20181029
  8. PLITICAN [Concomitant]
     Active Substance: ALIZAPRIDE HYDROCHLORIDE
     Indication: NAUSEA
     Dosage: 20 MG, QD
     Route: 042
     Dates: start: 20181026, end: 20181026
  9. LOPERAMIDE [Concomitant]
     Active Substance: LOPERAMIDE
     Indication: DIARRHOEA
     Dosage: 1G
     Route: 048
     Dates: start: 20181031, end: 20181103
  10. CEFIXIME. [Concomitant]
     Active Substance: CEFIXIME
     Indication: PROPHYLAXIS
     Dosage: 36 MG, QD
     Route: 048
     Dates: start: 20181020, end: 20181028
  11. SOLU-MEDROL [Concomitant]
     Active Substance: METHYLPREDNISOLONE SODIUM SUCCINATE
     Indication: NAUSEA
     Dosage: 35 MG, QD
     Route: 042
     Dates: start: 20181026, end: 20181026

REACTIONS (7)
  - Hypophagia [None]
  - Decreased appetite [Recovered/Resolved]
  - Diarrhoea [Recovered/Resolved]
  - Dehydration [Recovered/Resolved]
  - Hypokalaemia [Recovered/Resolved]
  - Hyponatraemia [Not Recovered/Not Resolved]
  - Hypokalaemia [Not Recovered/Not Resolved]

NARRATIVE: CASE EVENT DATE: 20181024
